FAERS Safety Report 7358916-2 (Version None)
Quarter: 2011Q1

REPORT INFORMATION
  Report Type: 
  Country: None (occurrence: None)
  Receive Date: 20110317
  Receipt Date: 20110314
  Transmission Date: 20110831
  Serious: Yes (Other)
  Sender: FDA-Public Use
  Company Number: PL-BRISTOL-MYERS SQUIBB COMPANY-15593817

PATIENT
  Age: 39 Year
  Sex: Female

DRUGS (2)
  1. ABILIFY [Suspect]
     Dosage: 7.5 MG DAILY,INCREASED TO 15MG/D
  2. OLANZAPINE [Suspect]
     Dosage: 20 MG/DAY,REDUCED TO 10 MG/D,5MG/DAY

REACTIONS (4)
  - ANXIETY [None]
  - DELUSION [None]
  - DECREASED APPETITE [None]
  - WEIGHT DECREASED [None]
